FAERS Safety Report 14481934 (Version 1)
Quarter: 2018Q1

REPORT INFORMATION
  Report Type: Report from Study
  Country: IT (occurrence: IT)
  Receive Date: 20180202
  Receipt Date: 20180202
  Transmission Date: 20180509
  Serious: Yes (Other)
  Sender: FDA-Public Use
  Company Number: IT-TEVA-2018-IT-851187

PATIENT
  Age: 53 Year
  Sex: Male
  Weight: 65 kg

DRUGS (4)
  1. 5-FU                               /00098801/ [Suspect]
     Active Substance: FLUOROURACIL
     Indication: SQUAMOUS CELL CARCINOMA OF HEAD AND NECK
     Route: 065
     Dates: start: 20151020, end: 20151207
  2. ERBITUX [Suspect]
     Active Substance: CETUXIMAB
     Route: 065
     Dates: end: 20160225
  3. CISPLATIN. [Suspect]
     Active Substance: CISPLATIN
     Indication: SQUAMOUS CELL CARCINOMA OF HEAD AND NECK
     Route: 065
     Dates: start: 20151020, end: 20151207
  4. ERBITUX [Suspect]
     Active Substance: CETUXIMAB
     Indication: SQUAMOUS CELL CARCINOMA OF HEAD AND NECK
     Route: 065
     Dates: start: 20151020

REACTIONS (3)
  - Stomatitis [Recovered/Resolved]
  - Oesophagitis [Recovered/Resolved]
  - Oropharyngeal candidiasis [Recovered/Resolved]

NARRATIVE: CASE EVENT DATE: 20160211
